FAERS Safety Report 12480276 (Version 1)
Quarter: 2016Q2

REPORT INFORMATION
  Report Type: Report from Study
  Country: US (occurrence: US)
  Receive Date: 20160620
  Receipt Date: 20160620
  Transmission Date: 20160815
  Serious: No
  Sender: FDA-Public Use
  Company Number: US-AMGEN-USASL2016077984

PATIENT
  Age: 28 Year
  Sex: Female

DRUGS (7)
  1. DIFLUCAN DUO [Concomitant]
     Indication: BACTERIAL INFECTION
  2. FLAGYL [Concomitant]
     Active Substance: METRONIDAZOLE\METRONIDAZOLE HYDROCHLORIDE
     Indication: FUNGAL INFECTION
  3. ENBREL [Suspect]
     Active Substance: ETANERCEPT
     Indication: PSORIATIC ARTHROPATHY
     Dosage: 50 MG, QWK
     Route: 065
     Dates: start: 20160601
  4. FLAGYL [Concomitant]
     Active Substance: METRONIDAZOLE\METRONIDAZOLE HYDROCHLORIDE
     Indication: BACTERIAL INFECTION
  5. TINDAMAX [Concomitant]
     Active Substance: TINIDAZOLE
     Indication: BACTERIAL INFECTION
  6. TINDAMAX [Concomitant]
     Active Substance: TINIDAZOLE
     Indication: FUNGAL INFECTION
  7. DIFLUCAN DUO [Concomitant]
     Indication: FUNGAL INFECTION

REACTIONS (3)
  - Injection site pain [Unknown]
  - Incorrect dose administered [Unknown]
  - Injection site haemorrhage [Unknown]

NARRATIVE: CASE EVENT DATE: 20160608
